FAERS Safety Report 8536444-6 (Version None)
Quarter: 2012Q3

REPORT INFORMATION
  Report Type: 
  Country: None (occurrence: None)
  Receive Date: 20120725
  Receipt Date: 20120719
  Transmission Date: 20120928
  Serious: Yes (Life-Threatening, Hospitalization)
  Sender: FDA-Public Use
  Company Number: DE-ROCHE-1091523

PATIENT
  Sex: Male
  Weight: 130.5 kg

DRUGS (2)
  1. MIRCERA [Suspect]
     Indication: NEPHROGENIC ANAEMIA
     Dosage: ON 19/MAY/2012, LAST DOSE PRIOR TO SAE.
     Route: 042
     Dates: start: 20111229
  2. IRON (III) HYDROXIDE-SUCROSE COMPLEX [Concomitant]

REACTIONS (3)
  - SYNCOPE [None]
  - HEAD INJURY [None]
  - FALL [None]
